FAERS Safety Report 6113103-0 (Version None)
Quarter: 2009Q1

REPORT INFORMATION
  Report Type: 
  Country: None (occurrence: None)
  Receive Date: 20090312
  Receipt Date: 20090306
  Transmission Date: 20090719
  Serious: Yes (Other)
  Sender: FDA-Public Use
  Company Number: JP-MERCK-0902USA03879

PATIENT
  Age: 15 Year
  Sex: Male

DRUGS (7)
  1. SINGULAIR [Suspect]
     Indication: WHEEZING
     Route: 048
     Dates: start: 20080726, end: 20081001
  2. SINGULAIR [Suspect]
     Route: 048
     Dates: start: 20090124
  3. SINGULAIR [Suspect]
     Indication: RHINITIS ALLERGIC
     Route: 048
     Dates: start: 20080726, end: 20081001
  4. SINGULAIR [Suspect]
     Route: 048
     Dates: start: 20090124
  5. ZESULAN [Suspect]
     Route: 048
  6. URALYT [Concomitant]
     Route: 048
     Dates: end: 20080801
  7. URALYT [Concomitant]
     Route: 048
     Dates: start: 20080801

REACTIONS (1)
  - HYPERKALAEMIA [None]
